FAERS Safety Report 21605845 (Version 2)
Quarter: 2022Q4

REPORT INFORMATION
  Report Type: Spontaneous
  Country: RU (occurrence: RU)
  Receive Date: 20221116
  Receipt Date: 20221205
  Transmission Date: 20230112
  Serious: Yes (Other)
  Sender: FDA-Public Use
  Company Number: RU-SUN PHARMACEUTICAL INDUSTRIES LTD-2022R1-362470

PATIENT
  Age: 22 Year
  Sex: Female
  Weight: 55 kg

DRUGS (2)
  1. SOTRET [Suspect]
     Active Substance: ISOTRETINOIN
     Indication: Acne
     Dosage: 40 MILLIGRAM, DAILY
     Route: 065
     Dates: start: 20220914, end: 20220916
  2. SOTRET [Suspect]
     Active Substance: ISOTRETINOIN
     Dosage: 20 MILLIGRAM, DAILY
     Route: 065

REACTIONS (3)
  - Condition aggravated [Not Recovered/Not Resolved]
  - Eczema [Recovered/Resolved]
  - Drug ineffective [Unknown]
